FAERS Safety Report 7159329 (Version 2)
Quarter: 2020Q3

REPORT INFORMATION
  Report Type: Report from Study
  Country: US (occurrence: US)
  Receive Date: 20091027
  Receipt Date: 20091110
  Transmission Date: 20201105
  Serious: Yes (Death, Hospitalization)
  Sender: FDA-Public Use
  Company Number: US-ROCHE-659759

PATIENT
  Age: 88 Year
  Sex: Male

DRUGS (1)
  1. IBANDRONIC ACID. [Suspect]
     Active Substance: IBANDRONIC ACID
     Indication: PRODUCT USED FOR UNKNOWN INDICATION
     Route: 065
     Dates: end: 200606

REACTIONS (5)
  - Femur fracture [Unknown]
  - Fall [Unknown]
  - Spinal fracture [Unknown]
  - Death [Fatal]
  - Hip arthroplasty [Unknown]

NARRATIVE: CASE EVENT DATE: 20051105
